FAERS Safety Report 12157556 (Version 1)
Quarter: 2016Q1

REPORT INFORMATION
  Report Type: Report from Study
  Country: US (occurrence: US)
  Receive Date: 20160308
  Receipt Date: 20160308
  Transmission Date: 20160526
  Serious: Yes (Hospitalization, Other)
  Sender: FDA-Public Use
  Company Number: US-AMGEN-USASL2016025711

PATIENT
  Age: 59 Year
  Sex: Female

DRUGS (1)
  1. ENBREL [Suspect]
     Active Substance: ETANERCEPT
     Indication: RHEUMATOID ARTHRITIS
     Dosage: UNK UNK, QWK
     Route: 065
     Dates: start: 2005

REACTIONS (5)
  - Skin ulcer [Recovering/Resolving]
  - Vascular stent insertion [Unknown]
  - Thrombosis [Unknown]
  - Impaired healing [Recovering/Resolving]
  - Limb injury [Unknown]

NARRATIVE: CASE EVENT DATE: 2009
